FAERS Safety Report 4822458-6 (Version None)
Quarter: 2005Q4

REPORT INFORMATION
  Report Type: 
  Country: None (occurrence: None)
  Receive Date: 20051104
  Receipt Date: 20051026
  Transmission Date: 20060501
  Serious: Yes (Disabling, Other)
  Sender: FDA-Public Use
  Company Number: 218903

PATIENT
  Age: 44 Year
  Sex: Female

DRUGS (1)
  1. RAPTIVA [Suspect]
     Indication: PSORIASIS
     Dosage: 1 MG/KG, 1/WEEK, SUBCUTANEOUS
     Route: 058
     Dates: start: 20041215, end: 20050614

REACTIONS (6)
  - ARTHRALGIA [None]
  - BACK PAIN [None]
  - DRUG INEFFECTIVE [None]
  - FIBROMYALGIA [None]
  - IMPAIRED WORK ABILITY [None]
  - MYALGIA [None]
